FAERS Safety Report 7391995-5 (Version None)
Quarter: 2011Q2

REPORT INFORMATION
  Report Type: 
  Country: None (occurrence: None)
  Receive Date: 20110404
  Receipt Date: 20110322
  Transmission Date: 20111010
  Serious: Yes (Other)
  Sender: FDA-Public Use
  Company Number: IT-CELGENEUS-083-50794-11032624

PATIENT
  Sex: Male

DRUGS (4)
  1. VIDAZA [Suspect]
     Dosage: 130 MILLIGRAM
     Route: 058
     Dates: start: 20101220, end: 20110222
  2. ACYCLOVIR [Concomitant]
     Route: 048
  3. MODURETIC 5-50 [Concomitant]
     Route: 048
  4. DIFLUCAN [Concomitant]
     Route: 048

REACTIONS (1)
  - DEEP VEIN THROMBOSIS [None]
